FAERS Safety Report 7406027-X (Version None)
Quarter: 2011Q2

REPORT INFORMATION
  Report Type: 
  Country: None (occurrence: None)
  Receive Date: 20110411
  Receipt Date: 20110405
  Transmission Date: 20111010
  Serious: Yes (Death)
  Sender: FDA-Public Use
  Company Number: A0910258A

PATIENT
  Age: 86 Year
  Sex: Female

DRUGS (2)
  1. ROMIPLOSTIM [Concomitant]
  2. PROMACTA [Suspect]
     Dosage: 50MG PER DAY
     Route: 048
     Dates: start: 20100320, end: 20110124

REACTIONS (1)
  - COLON CANCER [None]
